FAERS Safety Report 9316240 (Version 1)
Quarter: 2013Q2

REPORT INFORMATION
  Report Type: Spontaneous
  Country: US (occurrence: US)
  Receive Date: 20130530
  Receipt Date: 20130530
  Transmission Date: 20140414
  Serious: Yes (Other)
  Sender: FDA-Public Use
  Company Number: US-ROCHE-1229016

PATIENT
  Age: 86 Year
  Sex: Female

DRUGS (8)
  1. LUCENTIS [Suspect]
     Indication: AGE-RELATED MACULAR DEGENERATION
     Route: 050
  2. FORTEO [Concomitant]
     Indication: OSTEOPOROSIS
     Route: 058
  3. ASPIRIN [Concomitant]
     Indication: ANTICOAGULANT THERAPY
     Route: 048
  4. SYNTHROID [Concomitant]
     Indication: HYPOTHYROIDISM
     Route: 048
  5. SPIRIVA [Concomitant]
     Indication: CHRONIC OBSTRUCTIVE PULMONARY DISEASE
  6. ADVAIR [Concomitant]
     Indication: CHRONIC OBSTRUCTIVE PULMONARY DISEASE
  7. LISINOPRIL [Concomitant]
     Indication: HYPERTENSION
     Route: 048
  8. BYSTOLIC [Concomitant]
     Indication: HYPERTENSION
     Route: 048

REACTIONS (5)
  - Transient ischaemic attack [Recovered/Resolved]
  - Fall [Unknown]
  - Joint dislocation [Unknown]
  - Inner ear disorder [Unknown]
  - Eye pain [Recovered/Resolved]
